FAERS Safety Report 23427989 (Version 1)
Quarter: 2024Q1

REPORT INFORMATION
  Report Type: Spontaneous
  Country: US (occurrence: None)
  Receive Date: 20240121
  Receipt Date: 20240121
  Transmission Date: 20240410
  Serious: Yes (Life-Threatening, Other)
  Sender: FDA-Public Use
  Company Number: None

PATIENT
  Age: 32 Year
  Sex: Female
  Weight: 83.25 kg

DRUGS (2)
  1. HYZAAR [Suspect]
     Active Substance: HYDROCHLOROTHIAZIDE\LOSARTAN POTASSIUM
     Dosage: FREQUENCY : DAILY;?
     Route: 048
  2. HYZAAR [Concomitant]
     Active Substance: HYDROCHLOROTHIAZIDE\LOSARTAN POTASSIUM
     Dates: start: 20181125, end: 20181125

REACTIONS (3)
  - Chest pain [None]
  - Dyspnoea [None]
  - Palpitations [None]

NARRATIVE: CASE EVENT DATE: 20190125
